FAERS Safety Report 5792093-4 (Version None)
Quarter: 2008Q2

REPORT INFORMATION
  Report Type: 
  Country: None (occurrence: None)
  Receive Date: 20080625
  Receipt Date: 20080303
  Transmission Date: 20081010
  Serious: No
  Sender: FDA-Public Use
  Company Number: US-WYE-H02932008

PATIENT
  Age: 83 Year
  Sex: Female

DRUGS (2)
  1. TORISEL [Suspect]
     Indication: RENAL CELL CARCINOMA
     Dosage: 25 MG 1X PER 1 WK, INTRAVENOUS; RESTARTED AFTER RECEIVED FOR APPROXIMATELY 4 MONTHS THEN STOPPED
     Route: 042
  2. NEXAVAR [Concomitant]

REACTIONS (1)
  - INTERSTITIAL LUNG DISEASE [None]
